FAERS Safety Report 11102735 (Version 3)
Quarter: 2016Q2

REPORT INFORMATION
  Report Type: Spontaneous
  Country: US (occurrence: US)
  Receive Date: 20150511
  Receipt Date: 20160609
  Transmission Date: 20160815
  Serious: No
  Sender: FDA-Public Use
  Company Number: US-JNJFOC-20150504395

PATIENT
  Sex: Male

DRUGS (2)
  1. RISPERDAL [Suspect]
     Active Substance: RISPERIDONE
     Indication: SLEEP DISORDER
     Dosage: 1-3 MG
     Route: 048
     Dates: start: 2003, end: 2010
  2. RISPERDAL [Suspect]
     Active Substance: RISPERIDONE
     Indication: ABNORMAL BEHAVIOUR
     Dosage: 1-3 MG
     Route: 048
     Dates: start: 2003, end: 2010

REACTIONS (4)
  - Hyperaesthesia [Unknown]
  - Gynaecomastia [Unknown]
  - Breast pain [Unknown]
  - Abnormal weight gain [Unknown]
